FAERS Safety Report 16190701 (Version 1)
Quarter: 2019Q2

REPORT INFORMATION
  Report Type: Spontaneous
  Country: US (occurrence: US)
  Receive Date: 20190412
  Receipt Date: 20190412
  Transmission Date: 20190711
  Serious: Yes (Other)
  Sender: FDA-Public Use
  Company Number: US-MYLANLABS-2019M1033615

PATIENT
  Age: 54 Year
  Sex: Male

DRUGS (2)
  1. PREDNISONE. [Concomitant]
     Active Substance: PREDNISONE
     Indication: LUPUS NEPHRITIS
     Route: 065
  2. WARFARIN [Suspect]
     Active Substance: WARFARIN
     Indication: PULMONARY EMBOLISM
     Route: 065

REACTIONS (7)
  - Haemoptysis [Recovered/Resolved]
  - Fluid overload [Unknown]
  - Anticoagulation drug level above therapeutic [Unknown]
  - Melaena [Unknown]
  - Fatigue [Unknown]
  - Malaise [Unknown]
  - Haemoglobin decreased [Unknown]
